FAERS Safety Report 11348512 (Version 2)
Quarter: 2015Q3

REPORT INFORMATION
  Report Type: Spontaneous
  Country: DE (occurrence: DE)
  Receive Date: 20150806
  Receipt Date: 20150814
  Transmission Date: 20151125
  Serious: Yes (Other)
  Sender: FDA-Public Use
  Company Number: DE-TEVA-580746GER

PATIENT
  Sex: Female

DRUGS (1)
  1. LETROZOL-RATIOPHARM 2.5 MG FILMTABLETTEN [Suspect]
     Active Substance: LETROZOLE
     Route: 048
     Dates: start: 2014, end: 2015

REACTIONS (3)
  - Glaucoma [Not Recovered/Not Resolved]
  - Extrasystoles [Unknown]
  - Dyspnoea [Unknown]

NARRATIVE: CASE EVENT DATE: 2015
